FAERS Safety Report 16430737 (Version 3)
Quarter: 2019Q3

REPORT INFORMATION
  Report Type: Spontaneous
  Country: JP (occurrence: JP)
  Receive Date: 20190614
  Receipt Date: 20190705
  Transmission Date: 20191004
  Serious: Yes (Hospitalization)
  Sender: FDA-Public Use
  Company Number: JP-ASTRAZENECA-2019SE86618

PATIENT
  Age: 25811 Day
  Sex: Female
  Weight: 66 kg

DRUGS (11)
  1. BAYASPIRIN [Concomitant]
     Active Substance: ASPIRIN
     Route: 048
  2. TAGRISSO [Suspect]
     Active Substance: OSIMERTINIB
     Indication: NON-SMALL CELL LUNG CANCER
     Route: 048
     Dates: start: 20190530, end: 20190606
  3. CIBENOL [Concomitant]
     Active Substance: CIFENLINE
     Route: 048
  4. AMLODIN [Concomitant]
     Active Substance: AMLODIPINE BESYLATE
     Indication: HYPERTENSION
     Route: 048
     Dates: start: 20190622
  5. RANMARK [Concomitant]
     Active Substance: DENOSUMAB
     Indication: METASTASES TO BONE
     Route: 058
     Dates: start: 20190603
  6. DENOTAS [Concomitant]
     Active Substance: CALCIUM CARBONATE\CHOLECALCIFEROL\MAGNESIUM CARBONATE
     Indication: PROPHYLAXIS
     Route: 048
     Dates: start: 20190602
  7. BILASTINE [Concomitant]
     Active Substance: BILASTINE
     Indication: RASH
     Route: 048
     Dates: start: 20190606
  8. TAKEPRON [Concomitant]
     Active Substance: LANSOPRAZOLE
     Indication: PROPHYLAXIS AGAINST GASTROINTESTINAL ULCER
     Route: 048
     Dates: start: 20190606
  9. LOXOPROFEN [Concomitant]
     Active Substance: LOXOPROFEN
     Indication: PAIN
     Route: 065
     Dates: start: 20190510, end: 20190618
  10. OLMESARTAN MEDOXOMIL. [Concomitant]
     Active Substance: OLMESARTAN MEDOXOMIL
     Indication: HYPERTENSION
     Route: 048
     Dates: start: 20190624
  11. PREDONINE [Concomitant]
     Active Substance: PREDNISOLONE
     Indication: RASH
     Route: 048
     Dates: start: 20190606, end: 20190610

REACTIONS (1)
  - Erythema multiforme [Recovered/Resolved]

NARRATIVE: CASE EVENT DATE: 20190606
